FAERS Safety Report 21166438 (Version 1)
Quarter: 2022Q3

REPORT INFORMATION
  Report Type: Spontaneous
  Country: US (occurrence: None)
  Receive Date: 20220802
  Receipt Date: 20220802
  Transmission Date: 20221027
  Serious: No
  Sender: FDA-Public Use
  Company Number: None

PATIENT
  Age: 32 Year
  Sex: Female

DRUGS (2)
  1. TEMOZOLOMIDE [Suspect]
     Active Substance: TEMOZOLOMIDE
     Indication: Malignant connective tissue neoplasm
     Route: 048
     Dates: start: 20211004
  2. TEMOZOLOMIDE [Suspect]
     Active Substance: TEMOZOLOMIDE
     Indication: Soft tissue sarcoma

REACTIONS (3)
  - Arrhythmia [None]
  - Pyrexia [None]
  - Respiratory arrest [None]

NARRATIVE: CASE EVENT DATE: 20220715
